FAERS Safety Report 8518467 (Version 3)
Quarter: 2012Q4

REPORT INFORMATION
  Report Type: 
  Country: US (occurrence: US)
  Receive Date: 20120417
  Receipt Date: 20120919
  Transmission Date: 20130627
  Serious: No
  Sender: FDA-Public Use
  Company Number: US-ASTRAZENECA-2011SE19937

PATIENT
  Age: 55 Year
  Sex: Female

DRUGS (4)
  1. SYMBICORT [Suspect]
     Route: 055
  2. NEXIUM [Suspect]
     Route: 048
  3. ZESTRIL [Suspect]
     Route: 048
  4. TOPROL XL [Suspect]
     Route: 048

REACTIONS (4)
  - Dyspnoea [Unknown]
  - Abdominal pain upper [Unknown]
  - Hypertension [Unknown]
  - Drug dose omission [Unknown]
